FAERS Safety Report 16966257 (Version 11)
Quarter: 2021Q4

REPORT INFORMATION
  Report Type: Spontaneous
  Country: US (occurrence: US)
  Receive Date: 20191028
  Receipt Date: 20211206
  Transmission Date: 20220303
  Serious: No
  Sender: FDA-Public Use
  Company Number: US-PFIZER INC-2019330669

PATIENT
  Age: 55 Year
  Sex: Female
  Weight: 84.354 kg

DRUGS (5)
  1. SKELAXIN [Suspect]
     Active Substance: METAXALONE
     Indication: Back pain
     Dosage: 800 MG, 3X/DAY
  2. SKELAXIN [Suspect]
     Active Substance: METAXALONE
     Indication: Neck pain
     Dosage: 800 MG, 2X/DAY (QUANTITY FOR 90 DAYS: 180)
     Route: 048
  3. SKELAXIN [Suspect]
     Active Substance: METAXALONE
     Indication: Arthralgia
     Dosage: 800 MG, AS NEEDED (TWICE A DAY AS NEEDED FOR 90 DAYS)
     Route: 048
  4. SKELAXIN [Suspect]
     Active Substance: METAXALONE
     Indication: Arthralgia
  5. SKELAXIN [Suspect]
     Active Substance: METAXALONE
     Indication: Muscle spasms

REACTIONS (5)
  - Malaise [Unknown]
  - Back disorder [Unknown]
  - Musculoskeletal discomfort [Unknown]
  - Memory impairment [Unknown]
  - Off label use [Unknown]
